FAERS Safety Report 8155166-7 (Version None)
Quarter: 2012Q1

REPORT INFORMATION
  Report Type: 
  Country: None (occurrence: None)
  Receive Date: 20120221
  Receipt Date: 20120210
  Transmission Date: 20120608
  Serious: Yes (Other)
  Sender: FDA-Public Use
  Company Number: US-ASTRAZENECA-2012SE11318

PATIENT
  Age: 77 Year
  Sex: Female
  Weight: 85.3 kg

DRUGS (7)
  1. METROPHIL [Concomitant]
  2. LISINOPRIL [Suspect]
     Route: 048
  3. PAVALIN [Concomitant]
  4. CRESTOR [Suspect]
     Route: 048
     Dates: start: 20090101
  5. LIPONTIL [Concomitant]
  6. LEXAPRO [Concomitant]
  7. ASPIRIN [Concomitant]

REACTIONS (2)
  - ARTHROPATHY [None]
  - PNEUMONIA [None]
